FAERS Safety Report 13855525 (Version 1)
Quarter: 2017Q3

REPORT INFORMATION
  Report Type: Spontaneous
  Country: US (occurrence: US)
  Receive Date: 20170810
  Receipt Date: 20170810
  Transmission Date: 20171127
  Serious: No
  Sender: FDA-Public Use
  Company Number: US-PFIZER INC-2017344759

PATIENT
  Age: 17 Year
  Sex: Male
  Weight: 55 kg

DRUGS (12)
  1. LEVOTHROID [Concomitant]
     Active Substance: LEVOTHYROXINE SODIUM
     Dosage: 75 UG, 1X/DAY (TAKE 1 TAB BY MOUTH DAILY, TAKE IN THE MORNING ON AN EMPTY STOMACH)
     Route: 048
  2. SOLU-CORTEF [Concomitant]
     Active Substance: HYDROCORTISONE SODIUM SUCCINATE
     Indication: LETHARGY
     Dosage: 100 MG, UNK (INJECT 100MG IMX1 FOR SEVERE LOW BS OF LETHARGY)
     Route: 030
  3. SYNTHROID [Concomitant]
     Active Substance: LEVOTHYROXINE SODIUM
     Dosage: 75 UG, 1X/DAY(TAKE 1 TAB BY MOUTH DAILY,TAKE IN THE MORNING ON AN EMPTY STOMACH)
     Route: 048
  4. LEVOTHROID [Concomitant]
     Active Substance: LEVOTHYROXINE SODIUM
     Dosage: 50 UG, UNK
  5. DEPO-TESTOSTERONE [Concomitant]
     Active Substance: TESTOSTERONE CYPIONATE
     Dosage: 150 MG, UNK (EVERY 4 WEEKS)
  6. SYNTHROID [Concomitant]
     Active Substance: LEVOTHYROXINE SODIUM
     Dosage: 50 UG, DAILY
  7. CLARITIN [Concomitant]
     Active Substance: LORATADINE
     Indication: HYPERSENSITIVITY
     Dosage: 10 MG, AS NEEDED (TAKE 1 TAB BY MOUTH DAILY AS NEEDED FOR ALLERGIES)
     Route: 048
  8. GENOTROPIN [Suspect]
     Active Substance: SOMATROPIN
     Indication: GROWTH HORMONE DEFICIENCY
     Dosage: 2.6 MG, DAILY(2.6MG INTO THE SKIN DAILY)
  9. LEXAPRO [Concomitant]
     Active Substance: ESCITALOPRAM OXALATE
     Dosage: 20 MG, DAILY
     Route: 048
  10. DEPO-TESTOSTERONE [Concomitant]
     Active Substance: TESTOSTERONE CYPIONATE
     Dosage: 0.75 ML, UNK
     Route: 030
  11. CORTEFIN [Concomitant]
     Dosage: 5 MG, 3X/DAY(TAKE 1 TAB BY MOUTH 3 TIME DAILY. DOUBLE DOSE DURING SICK DAYS)
     Route: 048
  12. ABILIFY PO [Concomitant]
     Dosage: UNK
     Route: 048

REACTIONS (2)
  - Drug dose omission [Unknown]
  - Blood testosterone decreased [Unknown]
